FAERS Safety Report 12365691 (Version 1)
Quarter: 2016Q2

REPORT INFORMATION
  Report Type: Spontaneous
  Country: US (occurrence: US)
  Receive Date: 20160513
  Receipt Date: 20160513
  Transmission Date: 20160815
  Serious: No
  Sender: FDA-Public Use
  Company Number: US-TEVA-659923ACC

PATIENT
  Sex: Female
  Weight: 52.21 kg

DRUGS (1)
  1. PLAN B ONE-STEP [Suspect]
     Active Substance: LEVONORGESTREL
     Indication: POST COITAL CONTRACEPTION
     Dates: start: 2014, end: 2014

REACTIONS (3)
  - Vaginal haemorrhage [Recovered/Resolved]
  - Hypomenorrhoea [Not Recovered/Not Resolved]
  - Rash erythematous [Recovered/Resolved]

NARRATIVE: CASE EVENT DATE: 2014
